FAERS Safety Report 12187317 (Version 1)
Quarter: 2016Q1

REPORT INFORMATION
  Report Type: Spontaneous
  Country: US (occurrence: US)
  Receive Date: 20160317
  Receipt Date: 20160317
  Transmission Date: 20160526
  Serious: No
  Sender: FDA-Public Use
  Company Number: US-WARNER CHILCOTT, LLC-1049243

PATIENT
  Age: 67 Year
  Sex: Female

DRUGS (8)
  1. ESTRACE [Suspect]
     Active Substance: ESTRADIOL
     Indication: BLADDER SPASM
     Route: 067
     Dates: start: 201504, end: 201505
  2. CALCIUM CITRATE [Concomitant]
     Active Substance: CALCIUM CITRATE
  3. DICLOMAX [Concomitant]
  4. GLUCOSAMINE [Concomitant]
     Active Substance: GLUCOSAMINE
  5. IRON [Concomitant]
     Active Substance: IRON
  6. LEVOTHYROXINE. [Concomitant]
     Active Substance: LEVOTHYROXINE
  7. HYDROCHLOROTHIAZIDE. [Concomitant]
     Active Substance: HYDROCHLOROTHIAZIDE
  8. BIOTIN [Concomitant]
     Active Substance: BIOTIN

REACTIONS (4)
  - Off label use [Recovered/Resolved]
  - Dysuria [Recovered/Resolved]
  - Vulvovaginal pruritus [Recovering/Resolving]
  - Vulvovaginal discomfort [Recovered/Resolved]

NARRATIVE: CASE EVENT DATE: 201505
